FAERS Safety Report 5801237-7 (Version None)
Quarter: 2008Q3

REPORT INFORMATION
  Report Type: 
  Country: None (occurrence: None)
  Receive Date: 20080707
  Receipt Date: 20080625
  Transmission Date: 20090109
  Serious: Yes (Hospitalization)
  Sender: FDA-Public Use
  Company Number: US-JNJFOC-20080606491

PATIENT
  Sex: Female
  Weight: 82.56 kg

DRUGS (12)
  1. FENTANYL TRANSDERMAL SYSTEM [Suspect]
     Indication: BACK PAIN
     Route: 062
  2. POTASSIUM CHLORIDE [Concomitant]
     Indication: BLOOD POTASSIUM DECREASED
     Route: 048
  3. TOPAMAX [Concomitant]
     Indication: MIGRAINE
     Route: 048
  4. PAXIL CR [Concomitant]
     Indication: DEPRESSION
     Route: 048
  5. RANITIDINE HCL [Concomitant]
     Indication: HIATUS HERNIA
     Route: 048
  6. PREMARIN [Concomitant]
     Indication: HORMONE LEVEL ABNORMAL
     Route: 048
  7. CHANTIX [Concomitant]
     Indication: SMOKING CESSATION THERAPY
     Route: 048
  8. BIS [Concomitant]
     Indication: HEPATIC ENZYME ABNORMAL
     Route: 030
  9. XANAX [Concomitant]
     Indication: ANXIETY
     Route: 048
  10. NARCO [Concomitant]
     Indication: PAIN
     Dosage: 10/325MG, 1 EVERY 6-8 HOURS
     Route: 048
  11. PHENERGAN HCL [Concomitant]
     Indication: NAUSEA
     Route: 048
  12. VESICARE [Concomitant]
     Indication: BLADDER DISORDER
     Route: 048

REACTIONS (5)
  - BLOOD POTASSIUM DECREASED [None]
  - COLITIS ULCERATIVE [None]
  - DIVERTICULITIS [None]
  - HEPATIC ENZYME INCREASED [None]
  - WRONG TECHNIQUE IN DRUG USAGE PROCESS [None]
